FAERS Safety Report 18325295 (Version 1)
Quarter: 2020Q3

REPORT INFORMATION
  Report Type: Report from Study
  Country: CO (occurrence: CO)
  Receive Date: 20200929
  Receipt Date: 20200929
  Transmission Date: 20201103
  Serious: Yes (Other)
  Sender: FDA-Public Use
  Company Number: CO-JNJFOC-A-CH2020-206008

PATIENT
  Age: 55 Year
  Sex: Male
  Weight: 65 kg

DRUGS (5)
  1. ALLOPURINOL. [Concomitant]
     Active Substance: ALLOPURINOL
  2. HALOPERIDOL. [Concomitant]
     Active Substance: HALOPERIDOL
  3. OPSUMIT [Suspect]
     Active Substance: MACITENTAN
     Route: 048
     Dates: start: 201908
  4. OPSUMIT [Suspect]
     Active Substance: MACITENTAN
     Indication: PULMONARY ARTERIAL HYPERTENSION
     Dosage: 10 MG, QD
     Route: 048
     Dates: start: 20200528
  5. OXYGEN. [Concomitant]
     Active Substance: OXYGEN

REACTIONS (12)
  - Road traffic accident [Not Recovered/Not Resolved]
  - Fatigue [Recovering/Resolving]
  - Choking sensation [Recovering/Resolving]
  - Burning sensation [Not Recovered/Not Resolved]
  - Malaise [Recovering/Resolving]
  - Limb injury [Not Recovered/Not Resolved]
  - Dizziness [Not Recovered/Not Resolved]
  - Product dose omission issue [Unknown]
  - Head injury [Not Recovered/Not Resolved]
  - Traumatic lung injury [Unknown]
  - Agitation [Not Recovered/Not Resolved]
  - Abnormal behaviour [Not Recovered/Not Resolved]

NARRATIVE: CASE EVENT DATE: 2020
